FAERS Safety Report 18759748 (Version 2)
Quarter: 2021Q1

REPORT INFORMATION
  Report Type: Spontaneous
  Country: US (occurrence: US)
  Receive Date: 20210119
  Receipt Date: 20210201
  Transmission Date: 20210419
  Serious: No
  Sender: FDA-Public Use
  Company Number: US-PFIZER INC-2019254396

PATIENT
  Age: 58 Year
  Sex: Female

DRUGS (3)
  1. LYRICA [Suspect]
     Active Substance: PREGABALIN
     Dosage: 50 MG, 2X/DAY
     Route: 048
  2. LYRICA [Suspect]
     Active Substance: PREGABALIN
     Dosage: UNK UNK, DAILY [50 MG CAPSULE, TAKE 1?2 CAPSULES (50?100 MG TOTAL) BY MOUTH DAILY]
     Route: 048
  3. LYRICA [Suspect]
     Active Substance: PREGABALIN
     Indication: FIBROMYALGIA
     Dosage: 75 MG, 1X/DAY (TAKE 1 CAPSULE BY ORAL ROUTE QHS (EVERY NIGHT))
     Route: 048

REACTIONS (1)
  - Memory impairment [Unknown]
